FAERS Safety Report 9880781 (Version 1)
Quarter: 2014Q1

REPORT INFORMATION
  Report Type: Spontaneous
  Country: US (occurrence: US)
  Receive Date: 20140207
  Receipt Date: 20140207
  Transmission Date: 20141002
  Serious: Yes (Other)
  Sender: FDA-Public Use
  Company Number: US-PFIZER INC-2014032546

PATIENT
  Age: 42 Year
  Sex: Female

DRUGS (8)
  1. XELJANZ [Suspect]
     Indication: RHEUMATOID ARTHRITIS
     Dosage: 5 MG, 2X/DAY
     Route: 048
     Dates: start: 201311
  2. CENTRUM [Concomitant]
     Dosage: UNK
  3. PREDNISONE [Concomitant]
     Dosage: UNK
  4. ALLEGRA-D [Concomitant]
     Dosage: UNK
  5. ETODOLAC [Concomitant]
     Dosage: UNK
  6. FLUCONAZOLE [Concomitant]
     Dosage: UNK
  7. LEVOTHYROXINE [Concomitant]
     Dosage: UNK
  8. OMEPRAZOLE [Concomitant]
     Dosage: UNK

REACTIONS (2)
  - Rheumatoid arthritis [Unknown]
  - Drug ineffective [Unknown]
